FAERS Safety Report 8196471-8 (Version None)
Quarter: 2012Q1

REPORT INFORMATION
  Report Type: 
  Country: None (occurrence: None)
  Receive Date: 20120309
  Receipt Date: 20120307
  Transmission Date: 20120608
  Serious: Yes (Life-Threatening)
  Sender: FDA-Public Use
  Company Number: JP-PFIZER INC-2012061484

PATIENT
  Age: 58 Year
  Sex: Male
  Weight: 62.5 kg

DRUGS (13)
  1. SILDENAFIL CITRATE [Suspect]
     Indication: MITRAL VALVE STENOSIS
     Dosage: 60 MG/DAY
     Dates: start: 20110826, end: 20110831
  2. ASPIRIN [Concomitant]
     Dosage: UNK
     Route: 048
     Dates: end: 20110916
  3. LANSOPRAZOLE [Concomitant]
     Dosage: UNK
     Dates: end: 20110916
  4. LOXONIN [Concomitant]
     Dosage: UNK
     Route: 048
     Dates: end: 20110916
  5. VANCOMYCIN [Concomitant]
     Dosage: UNK
     Route: 042
     Dates: end: 20110915
  6. IMIPENEM AND CILASTATIN SODIUM [Concomitant]
     Dosage: UNK
     Route: 042
     Dates: end: 20110915
  7. APIDRA [Concomitant]
     Dosage: UNK
     Route: 058
     Dates: end: 20110918
  8. PRINK [Concomitant]
     Dosage: UNK
     Route: 042
     Dates: start: 20110826, end: 20110913
  9. LEVOTHYROXINE SODIUM [Concomitant]
     Dosage: UNK
     Dates: end: 20110916
  10. EPOGIN [Concomitant]
     Indication: NEPHROGENIC ANAEMIA
     Dosage: UNK
     Route: 058
     Dates: end: 20110909
  11. SILDENAFIL CITRATE [Suspect]
     Dosage: 20 MG, 2X/DAY
     Route: 048
     Dates: start: 20110901, end: 20110908
  12. WARFARIN [Concomitant]
     Dosage: UNK
     Dates: end: 20110916
  13. LANTUS [Concomitant]
     Dosage: UNK
     Route: 058
     Dates: end: 20110918

REACTIONS (1)
  - HYPOTENSION [None]
